FAERS Safety Report 9818019 (Version 1)
Quarter: 2014Q1

REPORT INFORMATION
  Report Type: Spontaneous
  Country: US (occurrence: None)
  Receive Date: 20140113
  Receipt Date: 20140113
  Transmission Date: 20141002
  Serious: No
  Sender: FDA-Public Use
  Company Number: None

PATIENT
  Age: 61 Year
  Sex: Male

DRUGS (1)
  1. FLUOXETINE [Suspect]
     Indication: DEPRESSION
     Route: 048
     Dates: start: 201110, end: 201112

REACTIONS (5)
  - Myoclonus [None]
  - Depression [None]
  - Condition aggravated [None]
  - Bruxism [None]
  - Product substitution issue [None]
